FAERS Safety Report 21302708 (Version 2)
Quarter: 2022Q3

REPORT INFORMATION
  Report Type: Report from Study
  Country: FR (occurrence: FR)
  Receive Date: 20220907
  Receipt Date: 20220913
  Transmission Date: 20221027
  Serious: Yes (Hospitalization)
  Sender: FDA-Public Use
  Company Number: FR-SERVIER-S22009030

PATIENT

DRUGS (6)
  1. PEGASPARGASE [Suspect]
     Active Substance: PEGASPARGASE
     Indication: Acute lymphocytic leukaemia
     Dosage: 2575 [IU] INTERNATIONAL UNITS
     Route: 042
     Dates: start: 20220801, end: 20220801
  2. VINCRISTINE [Suspect]
     Active Substance: VINCRISTINE
     Indication: Acute lymphocytic leukaemia
     Dosage: 1.6 MG
     Route: 042
     Dates: start: 20220729, end: 20220812
  3. DAUNORUBICIN [Suspect]
     Active Substance: DAUNORUBICIN
     Indication: Acute lymphocytic leukaemia
     Dosage: 26 MG
     Route: 042
     Dates: start: 20220729, end: 20220812
  4. DEXAMETHASONE [Suspect]
     Active Substance: DEXAMETHASONE
     Indication: Acute lymphocytic leukaemia
     Dosage: 70 MG
     Route: 048
     Dates: start: 20220729, end: 20220812
  5. LEVETIRACETAM [Concomitant]
     Active Substance: LEVETIRACETAM
     Indication: Seizure prophylaxis
     Dosage: 20 MG/KG/D
     Route: 048
     Dates: start: 20200902
  6. TINZAPARIN [Concomitant]
     Active Substance: TINZAPARIN
     Indication: Anticoagulant therapy
     Dosage: 50000 [IU]
     Route: 065

REACTIONS (3)
  - Pancreatitis acute [Recovering/Resolving]
  - Febrile bone marrow aplasia [Recovering/Resolving]
  - Liver abscess [Unknown]

NARRATIVE: CASE EVENT DATE: 20220815
